FAERS Safety Report 9122359 (Version 2)
Quarter: 2013Q1

REPORT INFORMATION
  Report Type: Spontaneous
  Country: CA (occurrence: CA)
  Receive Date: 20130114
  Receipt Date: 20130318
  Transmission Date: 20140127
  Serious: Yes (Other)
  Sender: FDA-Public Use
  Company Number: PHHY2013CA002855

PATIENT
  Sex: Female

DRUGS (2)
  1. ACLASTA [Suspect]
     Indication: OSTEOPOROSIS
     Dosage: UNK
     Route: 042
     Dates: start: 20091218
  2. ACLASTA [Suspect]
     Dosage: UNK
     Route: 042
     Dates: start: 20120131

REACTIONS (3)
  - Vulval cancer [Unknown]
  - Coeliac disease [Unknown]
  - Lactose intolerance [Unknown]
